FAERS Safety Report 14019053 (Version 1)
Quarter: 2017Q3

REPORT INFORMATION
  Report Type: Report from Study
  Country: US (occurrence: US)
  Receive Date: 20170928
  Receipt Date: 20170928
  Transmission Date: 20171128
  Serious: No
  Sender: FDA-Public Use
  Company Number: PHHY2017US139427

PATIENT
  Age: 27 Year
  Sex: Female

DRUGS (2)
  1. GILENYA [Suspect]
     Active Substance: FINGOLIMOD HYDROCHLORIDE
     Indication: MULTIPLE SCLEROSIS
     Dosage: UNK UNK, QD
     Route: 048
  2. NEPHROCAPS [Concomitant]
     Active Substance: ASCORBIC ACID\BIOTIN\CYANOCOBALAMIN\FOLIC ACID\NIACIN\PANTOTHENIC ACID\PYRIDOXINE\RIBOFLAVIN\THIAMINE
     Indication: SUPPLEMENTATION THERAPY
     Dosage: UNK
     Route: 065
     Dates: start: 20170323

REACTIONS (7)
  - Melanocytic naevus [Unknown]
  - Lentigo [Unknown]
  - Acne [Unknown]
  - Fibrous histiocytoma [Unknown]
  - White blood cell count decreased [Unknown]
  - Haemangioma [Unknown]
  - Weight increased [Unknown]

NARRATIVE: CASE EVENT DATE: 20170323
